FAERS Safety Report 11302748 (Version 1)
Quarter: 2015Q3

REPORT INFORMATION
  Report Type: Spontaneous
  Country: US (occurrence: US)
  Receive Date: 20150723
  Receipt Date: 20150723
  Transmission Date: 20151125
  Serious: Yes (Hospitalization, Other)
  Sender: FDA-Public Use
  Company Number: US-SA-2015SA105032

PATIENT
  Age: 82 Year
  Sex: Male

DRUGS (1)
  1. DIABETA [Suspect]
     Active Substance: GLYBURIDE
     Indication: DIABETES MELLITUS
     Route: 065

REACTIONS (2)
  - Renal impairment [Unknown]
  - Blood glucose increased [Unknown]
